FAERS Safety Report 16852956 (Version 5)
Quarter: 2020Q1

REPORT INFORMATION
  Report Type: Report from Study
  Country: FR (occurrence: FR)
  Receive Date: 20190925
  Receipt Date: 20200211
  Transmission Date: 20200409
  Serious: Yes (Hospitalization, Other)
  Sender: FDA-Public Use
  Company Number: PHHY2019FR219191

PATIENT
  Age: 49 Year
  Sex: Male
  Weight: 71 kg

DRUGS (24)
  1. CERTICAN [Suspect]
     Active Substance: EVEROLIMUS
     Dosage: 1.5 OT X 2, UNK
     Route: 048
     Dates: start: 20180916
  2. PROGRAF [Concomitant]
     Active Substance: TACROLIMUS
     Dosage: 2 MG, UNK
     Route: 065
     Dates: start: 20150507, end: 20150603
  3. CERTICAN [Suspect]
     Active Substance: EVEROLIMUS
     Dosage: 3 MG, UNK
     Route: 048
     Dates: start: 20150604, end: 20150715
  4. PROGRAF [Concomitant]
     Active Substance: TACROLIMUS
     Dosage: 5.5 MG, UNK
     Route: 065
     Dates: start: 20140424, end: 20140826
  5. PROGRAF [Concomitant]
     Active Substance: TACROLIMUS
     Dosage: 4.5 MG, UNK
     Route: 065
     Dates: start: 20140919, end: 20141012
  6. CORTANCYL [Concomitant]
     Active Substance: PREDNISONE
     Dosage: 2 MG, UNK
     Route: 065
     Dates: start: 20140624, end: 20140724
  7. PROGRAF [Concomitant]
     Active Substance: TACROLIMUS
     Indication: IMMUNOSUPPRESSION
     Dosage: 7 MG, QD
     Route: 065
     Dates: start: 20140327, end: 20140423
  8. PROGRAF [Concomitant]
     Active Substance: TACROLIMUS
     Dosage: 5 MG, UNK
     Route: 065
     Dates: start: 20140827, end: 20140918
  9. PROGRAF [Concomitant]
     Active Substance: TACROLIMUS
     Dosage: 1.5 MG, UNK
     Route: 065
     Dates: start: 20150604, end: 20150715
  10. PROGRAF [Concomitant]
     Active Substance: TACROLIMUS
     Dosage: 3 MG, UNK
     Route: 065
     Dates: start: 20141128, end: 20150506
  11. CERTICAN [Suspect]
     Active Substance: EVEROLIMUS
     Dosage: 3 MG, UNK
     Route: 048
     Dates: start: 20150811, end: 20180704
  12. HEPARIN [Concomitant]
     Active Substance: HEPARIN SODIUM
     Indication: PULMONARY INFARCTION
     Dosage: UNK UNK, TID
     Route: 065
     Dates: start: 20171221, end: 20180126
  13. ELIQUIS [Concomitant]
     Active Substance: APIXABAN
     Indication: PRODUCT USED FOR UNKNOWN INDICATION
     Dosage: 2 DF
     Route: 065
  14. CERTICAN [Suspect]
     Active Substance: EVEROLIMUS
     Indication: LIVER TRANSPLANT
     Dosage: 2 MG, UNK
     Route: 048
     Dates: start: 20150507, end: 20150603
  15. CERTICAN [Suspect]
     Active Substance: EVEROLIMUS
     Dosage: 2.5 MG, UNK
     Route: 048
     Dates: start: 20150716, end: 20190810
  16. PROGRAF [Concomitant]
     Active Substance: TACROLIMUS
     Dosage: 4 MG, UNK
     Route: 065
     Dates: start: 20141013, end: 20141127
  17. RAMIPRIL. [Concomitant]
     Active Substance: RAMIPRIL
     Indication: PRODUCT USED FOR UNKNOWN INDICATION
     Route: 065
  18. CALCIUM [Concomitant]
     Active Substance: CALCIUM
     Indication: PRODUCT USED FOR UNKNOWN INDICATION
     Route: 065
  19. CERTICAN [Suspect]
     Active Substance: EVEROLIMUS
     Dosage: 3.5 MG, UNK
     Route: 048
     Dates: start: 20180705
  20. CORTANCYL [Concomitant]
     Active Substance: PREDNISONE
     Indication: IMMUNOSUPPRESSION
     Dosage: 4 MG, UNK
     Route: 065
     Dates: start: 20140327, end: 20140518
  21. CORTANCYL [Concomitant]
     Active Substance: PREDNISONE
     Dosage: 1 MG, UNK
     Route: 065
     Dates: start: 20140725, end: 20140826
  22. CELLCEPT [Concomitant]
     Active Substance: MYCOPHENOLATE MOFETIL\MYCOPHENOLATE MOFETIL HYDROCHLORIDE
     Indication: IMMUNOSUPPRESSION
     Dosage: 1000 MG, QD
     Route: 065
     Dates: start: 20150507, end: 20171128
  23. FUROSEMIDE. [Concomitant]
     Active Substance: FUROSEMIDE
     Indication: RENAL FAILURE
     Dosage: 500 MG, UNK
     Route: 065
     Dates: start: 20181013, end: 20181018
  24. CORTANCYL [Concomitant]
     Active Substance: PREDNISONE
     Dosage: 3 MG, UNK
     Route: 065
     Dates: start: 20140519, end: 20140623

REACTIONS (7)
  - Device related infection [Recovering/Resolving]
  - Cholangitis [Recovered/Resolved]
  - Bile duct stenosis [Recovering/Resolving]
  - Erysipelas [Recovered/Resolved]
  - Anaemia [Recovered/Resolved]
  - Haemoglobin decreased [Unknown]
  - Inflammation [Recovered/Resolved]

NARRATIVE: CASE EVENT DATE: 20180918
